FAERS Safety Report 8019410-9 (Version None)
Quarter: 2012Q1

REPORT INFORMATION
  Report Type: 
  Country: None (occurrence: None)
  Receive Date: 20120103
  Receipt Date: 20111227
  Transmission Date: 20120608
  Serious: Yes (Hospitalization)
  Sender: FDA-Public Use
  Company Number: PHHY2011JP112984

PATIENT
  Age: 41 Year
  Sex: Male

DRUGS (3)
  1. DIOVAN [Suspect]
     Dosage: 160 MG, UNK
     Route: 048
     Dates: start: 20100519, end: 20111227
  2. RASILEZ [Suspect]
     Indication: HYPERTENSION
     Dosage: 150 MG, DAILY
     Route: 048
     Dates: start: 20111107, end: 20111201
  3. CALBLOCK [Suspect]
     Dosage: 8 MG, UNK
     Route: 048
     Dates: start: 20100519, end: 20111227

REACTIONS (5)
  - DIZZINESS [None]
  - FALL [None]
  - ALTERED STATE OF CONSCIOUSNESS [None]
  - TRANSIENT ISCHAEMIC ATTACK [None]
  - STUPOR [None]
